FAERS Safety Report 16460962 (Version 1)
Quarter: 2019Q2

REPORT INFORMATION
  Report Type: Report from Study
  Country: ZA (occurrence: ZA)
  Receive Date: 20190620
  Receipt Date: 20190620
  Transmission Date: 20190711
  Serious: Yes (Other)
  Sender: FDA-Public Use
  Company Number: PHHY2018ZA071914

PATIENT
  Age: 54 Year
  Sex: Female

DRUGS (1)
  1. TUVIGIN [Suspect]
     Active Substance: FINGOLIMOD HYDROCHLORIDE
     Indication: RELAPSING-REMITTING MULTIPLE SCLEROSIS
     Dosage: 0.5 MG, UNK
     Route: 048
     Dates: start: 20180806, end: 20190610

REACTIONS (11)
  - Neutrophil count decreased [Unknown]
  - Blood pressure fluctuation [Unknown]
  - Mean cell haemoglobin increased [Unknown]
  - Balance disorder [Unknown]
  - Fatigue [Unknown]
  - Gait disturbance [Not Recovered/Not Resolved]
  - Lymphocyte count decreased [Unknown]
  - Blood pressure decreased [Unknown]
  - White blood cell count decreased [Unknown]
  - Bradycardia [Unknown]
  - Monocyte count decreased [Unknown]

NARRATIVE: CASE EVENT DATE: 20180806
